FAERS Safety Report 5367131-3 (Version None)
Quarter: 2007Q2

REPORT INFORMATION
  Report Type: 
  Country: None (occurrence: None)
  Receive Date: 20070622
  Receipt Date: 20060804
  Transmission Date: 20071010
  Serious: No
  Sender: FDA-Public Use
  Company Number: US-BRISTOL-MYERS SQUIBB COMPANY-13482211

PATIENT
  Sex: Female

DRUGS (1)
  1. CARBIDOPA AND LEVODOPA [Suspect]
     Indication: RESTLESS LEGS SYNDROME

REACTIONS (1)
  - DRUG INEFFECTIVE [None]
